FAERS Safety Report 4560093-8 (Version None)
Quarter: 2005Q1

REPORT INFORMATION
  Report Type: 
  Country: None (occurrence: None)
  Receive Date: 20050119
  Receipt Date: 20050107
  Transmission Date: 20050727
  Serious: Yes (Hospitalization)
  Sender: FDA-Public Use
  Company Number: 001-0981-994095

PATIENT
  Age: 74 Year
  Sex: Male
  Weight: 59.8748 kg

DRUGS (6)
  1. ATORVASTATIN (ATORVASTATIN) [Suspect]
     Indication: CORONARY ARTERY DISEASE
     Dosage: 10 MG (1 IN 1 D), ORAL; 80 MG (1 IN 1 D), ORAL
     Route: 048
     Dates: start: 19981218, end: 19990217
  2. ATORVASTATIN (ATORVASTATIN) [Suspect]
     Indication: CORONARY ARTERY DISEASE
     Dosage: 10 MG (1 IN 1 D), ORAL; 80 MG (1 IN 1 D), ORAL
     Route: 048
     Dates: start: 19990218, end: 19990517
  3. BISOPROLOL FUMARATE [Concomitant]
  4. ASPIRIN [Concomitant]
  5. MAXIDEX (BENZALKONIUM CHLORIDE, DEXAMETHASONE, PHENYLMRCURIC NITRATE) [Concomitant]
  6. WARFARIN SODIUM [Concomitant]

REACTIONS (11)
  - ATRIAL FIBRILLATION [None]
  - CARDIAC FAILURE [None]
  - COUGH [None]
  - DRUG TOLERANCE DECREASED [None]
  - DYSPNOEA [None]
  - EPIGASTRIC DISCOMFORT [None]
  - FEELING ABNORMAL [None]
  - HAEMATURIA [None]
  - INTERNATIONAL NORMALISED RATIO INCREASED [None]
  - MALAISE [None]
  - PROTHROMBIN TIME PROLONGED [None]
